FAERS Safety Report 20808494 (Version 1)
Quarter: 2022Q2

REPORT INFORMATION
  Report Type: Spontaneous
  Country: US (occurrence: None)
  Receive Date: 20220509
  Receipt Date: 20220509
  Transmission Date: 20220720
  Serious: Yes (Other)
  Sender: FDA-Public Use
  Company Number: None

PATIENT
  Age: 61 Year
  Sex: Female
  Weight: 99.9 kg

DRUGS (2)
  1. SEMGLEE (INSULIN GLARGINE-YFGN) [Suspect]
     Active Substance: INSULIN GLARGINE-YFGN
     Indication: Type 2 diabetes mellitus
     Dosage: FREQUENCY : DAILY;?
     Route: 058
     Dates: start: 20220408, end: 20220428
  2. SEMGLEE 100 UNITS/ML SUBQ SOL [Concomitant]
     Dates: start: 20220408, end: 20220428

REACTIONS (2)
  - Headache [None]
  - Blood glucose increased [None]

NARRATIVE: CASE EVENT DATE: 20220429
